FAERS Safety Report 5748986-7 (Version None)
Quarter: 2008Q2

REPORT INFORMATION
  Report Type: 
  Country: None (occurrence: None)
  Receive Date: 20080527
  Receipt Date: 20080516
  Transmission Date: 20081010
  Serious: Yes (Other)
  Sender: FDA-Public Use
  Company Number: US-JNJFOC-20080503828

PATIENT
  Sex: Female
  Weight: 69.4 kg

DRUGS (2)
  1. DURAGESIC-100 [Suspect]
     Indication: PAIN
     Route: 062
  2. FENTANYL TRANSDERMAL SYSTEM [Suspect]
     Indication: PAIN
     Route: 062

REACTIONS (4)
  - NAUSEA [None]
  - RESPIRATORY DISORDER [None]
  - SPINAL FRACTURE [None]
  - URINARY TRACT INFECTION [None]
